FAERS Safety Report 6021742-0 (Version None)
Quarter: 2008Q4

REPORT INFORMATION
  Report Type: 
  Country: None (occurrence: None)
  Receive Date: 20081229
  Receipt Date: 20081225
  Transmission Date: 20090506
  Serious: Yes (Life-Threatening, Other)
  Sender: FDA-Public Use
  Company Number: PHHY2008JP25996

PATIENT
  Sex: Female

DRUGS (7)
  1. VOLTAREN [Suspect]
     Indication: PYREXIA
     Dosage: 12.5 MG, PRN
     Route: 054
     Dates: start: 20081021, end: 20081021
  2. NORVASC [Concomitant]
     Indication: HYPERTENSION
     Dosage: 7.5 MG
     Route: 048
     Dates: end: 20081021
  3. MUCOSTA [Concomitant]
     Indication: GASTRITIS
     Dosage: 300 MG
     Route: 048
     Dates: end: 20081021
  4. ANPLAG [Concomitant]
     Dosage: 300 MG
     Route: 048
     Dates: end: 20081021
  5. OPALMON [Concomitant]
     Dosage: 15 UG
     Route: 048
     Dates: end: 20081021
  6. VESICARE [Concomitant]
     Indication: HYPERTONIC BLADDER
     Dosage: 5 MG
     Route: 048
     Dates: end: 20081021
  7. BENET [Concomitant]
     Indication: OSTEOPOROSIS
     Dosage: 17.5 MG
     Route: 048
     Dates: end: 20081021

REACTIONS (12)
  - BLOOD GLUCOSE INCREASED [None]
  - BLOOD UREA INCREASED [None]
  - DYSPNOEA [None]
  - ENDOTRACHEAL INTUBATION [None]
  - HAEMORRHAGE [None]
  - LYMPHOCYTE COUNT DECREASED [None]
  - PLEURAL EFFUSION [None]
  - PO2 DECREASED [None]
  - PULMONARY HAEMORRHAGE [None]
  - STRIDOR [None]
  - VASCULITIS [None]
  - X-RAY ABNORMAL [None]
